FAERS Safety Report 23381540 (Version 3)
Quarter: 2024Q1

REPORT INFORMATION
  Report Type: Spontaneous
  Country: US (occurrence: US)
  Receive Date: 20240109
  Receipt Date: 20240207
  Transmission Date: 20240410
  Serious: No
  Sender: FDA-Public Use
  Company Number: US-JNJFOC-20240100326

PATIENT
  Sex: Female

DRUGS (1)
  1. XARELTO [Suspect]
     Active Substance: RIVAROXABAN
     Indication: Product used for unknown indication
     Dosage: TAKES HER XERELTO EVERYDAY
     Route: 048

REACTIONS (6)
  - Panic disorder [Unknown]
  - Wrong technique in product usage process [Unknown]
  - Hypertension [Unknown]
  - Product size issue [Unknown]
  - Product physical issue [Unknown]
  - Incorrect dose administered [Unknown]

NARRATIVE: CASE EVENT DATE: 20231231
